FAERS Safety Report 10146397 (Version 1)
Quarter: 2014Q2

REPORT INFORMATION
  Report Type: Spontaneous
  Country: US (occurrence: US)
  Receive Date: 20140501
  Receipt Date: 20140501
  Transmission Date: 20141212
  Serious: Yes (Other)
  Sender: FDA-Public Use
  Company Number: US-PFIZER INC-2014114634

PATIENT
  Age: 84 Year
  Sex: Male
  Weight: 63.49 kg

DRUGS (7)
  1. ROBITUSSIN DM [Suspect]
     Indication: COUGH
     Dosage: 10 ML, 4X/DAY
     Dates: start: 20140421, end: 20140423
  2. ROBITUSSIN DM [Suspect]
     Indication: VIRAL INFECTION
  3. OMEPRAZOLE [Concomitant]
     Dosage: 20 MG, DAILY
  4. PEPCID [Concomitant]
     Dosage: 20 MG, DAILY
  5. AVODART [Concomitant]
     Dosage: 25 MG, DAILY
  6. TAMSULOSIN [Concomitant]
     Dosage: 24 MG, 2X/DAY
  7. ARMOUR THYROID [Concomitant]
     Dosage: 60 MG, DAILY

REACTIONS (3)
  - Choking [Recovered/Resolved]
  - Cough [Recovered/Resolved]
  - Dyspnoea [Recovered/Resolved]
